FAERS Safety Report 9655504 (Version 1)
Quarter: 2013Q4

REPORT INFORMATION
  Report Type: Spontaneous
  Country: US (occurrence: US)
  Receive Date: 20131029
  Receipt Date: 20131029
  Transmission Date: 20140711
  Serious: Yes (Death)
  Sender: FDA-Public Use
  Company Number: US-NAPPMUNDI-USA-2012-0090445

PATIENT
  Age: 36 Year
  Sex: Male

DRUGS (2)
  1. OXYCONTIN (NDA 22-272) [Suspect]
     Indication: BREAKTHROUGH PAIN
  2. PERCOCET /00867901/ [Suspect]
     Indication: BREAKTHROUGH PAIN

REACTIONS (1)
  - Overdose [Fatal]
